FAERS Safety Report 4340689-9 (Version None)
Quarter: 2004Q2

REPORT INFORMATION
  Report Type: 
  Country: None (occurrence: None)
  Receive Date: 20040414
  Receipt Date: 20040331
  Transmission Date: 20050107
  Serious: Yes (Death)
  Sender: FDA-Public Use
  Company Number: S04-USA-01687-01

PATIENT
  Age: 22 Year
  Sex: Female

DRUGS (3)
  1. LEXAPRO [Suspect]
     Indication: DEPRESSION
     Dosage: 10 MG QD PO
     Route: 048
     Dates: start: 20021105, end: 20021231
  2. LEXAPRO [Suspect]
     Indication: PREMENSTRUAL SYNDROME
     Dosage: 10 MG QD PO
     Route: 048
     Dates: start: 20021105, end: 20021231
  3. ORAL CONTRACEPTIVE (NOS) (ORAL CONTRACEPTIVE NOS) [Concomitant]

REACTIONS (3)
  - COMPLETED SUICIDE [None]
  - FAMILY STRESS [None]
  - INJURY ASPHYXIATION [None]
